FAERS Safety Report 25413501 (Version 1)
Quarter: 2025Q2

REPORT INFORMATION
  Report Type: Spontaneous
  Country: FR (occurrence: FR)
  Receive Date: 20250609
  Receipt Date: 20250609
  Transmission Date: 20250717
  Serious: Yes (Other)
  Sender: INCYTE
  Company Number: FR-EVENT-000593

PATIENT
  Age: 60 Year

DRUGS (1)
  1. OPZELURA [Suspect]
     Active Substance: RUXOLITINIB PHOSPHATE
     Indication: Vitiligo

REACTIONS (2)
  - Alopecia [Recovered/Resolved]
  - Hyperkeratosis follicularis et parafollicularis [Recovered/Resolved]
